FAERS Safety Report 18991746 (Version 1)
Quarter: 2021Q1

REPORT INFORMATION
  Report Type: Spontaneous
  Country: US (occurrence: US)
  Receive Date: 20210309
  Receipt Date: 20210309
  Transmission Date: 20210420
  Serious: Yes (Hospitalization)
  Sender: FDA-Public Use
  Company Number: None

PATIENT
  Sex: Male

DRUGS (4)
  1. GABAPENTIN. [Concomitant]
     Active Substance: GABAPENTIN
  2. DOK [Concomitant]
     Active Substance: DOCUSATE SODIUM
  3. SILDENAFIL. [Concomitant]
     Active Substance: SILDENAFIL
  4. INLYTA [Suspect]
     Active Substance: AXITINIB
     Indication: NEOPLASM MALIGNANT
     Route: 048
     Dates: start: 20200228

REACTIONS (1)
  - Gait disturbance [None]
